FAERS Safety Report 22231752 (Version 1)
Quarter: 2023Q2

REPORT INFORMATION
  Report Type: Spontaneous
  Country: US (occurrence: None)
  Receive Date: 20230420
  Receipt Date: 20230420
  Transmission Date: 20230722
  Serious: No
  Sender: FDA-Public Use
  Company Number: US-ROCHE-3102539

PATIENT
  Sex: Female

DRUGS (5)
  1. ESBRIET [Suspect]
     Active Substance: PIRFENIDONE
     Indication: Idiopathic pulmonary fibrosis
     Dosage: TAKE 1 TABLET BY MOUTH THREE TIMES DAILY.
     Route: 048
  2. ESBRIET [Suspect]
     Active Substance: PIRFENIDONE
     Indication: Idiopathic pulmonary fibrosis
     Dosage: TAKE 2 CAPSULES (534 MG) BY MOUTH 3 TIMES A DAY WITH MEALS FOR 28 DAYS
     Route: 048
     Dates: start: 20220209, end: 20220523
  3. CLARITIN [Concomitant]
     Active Substance: LORATADINE
  4. IPRATROPIUM [Concomitant]
     Active Substance: IPRATROPIUM
  5. THERACRAN [Concomitant]

REACTIONS (2)
  - Rash [Recovered/Resolved]
  - Urticaria [Recovered/Resolved]
